FAERS Safety Report 7655367-8 (Version None)
Quarter: 2011Q3

REPORT INFORMATION
  Report Type: 
  Country: None (occurrence: None)
  Receive Date: 20110729
  Receipt Date: 20110714
  Transmission Date: 20111222
  Serious: Yes (Hospitalization)
  Sender: FDA-Public Use
  Company Number: TCI2011A04048

PATIENT
  Age: 68 Year
  Sex: Female

DRUGS (6)
  1. BASEN (VOGLIBOSE) [Concomitant]
  2. ACTOS [Suspect]
     Indication: TYPE 2 DIABETES MELLITUS
     Dosage: 15 MG (15 MG, 1 D), PER ORAL
     Route: 048
     Dates: end: 20110609
  3. PRAVASTATIN [Concomitant]
  4. GLYBURIDE [Concomitant]
  5. METFORMIN HYDROCHLORIDE [Concomitant]
  6. PURSENNID (SENNOSIDE A+B CALCIUM) [Concomitant]

REACTIONS (3)
  - DYSURIA [None]
  - HAEMATURIA [None]
  - BLADDER CANCER [None]
